FAERS Safety Report 20706929 (Version 5)
Quarter: 2022Q4

REPORT INFORMATION
  Report Type: Report from Study
  Country: US (occurrence: US)
  Receive Date: 20220413
  Receipt Date: 20221220
  Transmission Date: 20230112
  Serious: Yes (Hospitalization, Other)
  Sender: FDA-Public Use
  Company Number: US-TAKEDA-2021TUS041837

PATIENT
  Age: 12 Year
  Sex: Male
  Weight: 63 kg

DRUGS (10)
  1. HUMAN IMMUNOGLOBULIN G [Suspect]
     Active Substance: HUMAN IMMUNOGLOBULIN G
     Indication: Immune thrombocytopenia
     Dosage: 40 GRAM, Q4WEEKS
     Route: 042
     Dates: start: 20200624
  2. HUMAN IMMUNOGLOBULIN G [Suspect]
     Active Substance: HUMAN IMMUNOGLOBULIN G
     Indication: Immunodeficiency common variable
     Dosage: 60 GRAM, Q4WEEKS
     Route: 042
     Dates: start: 20200624
  3. TOPIRAMATE [Concomitant]
     Active Substance: TOPIRAMATE
     Route: 065
  4. SINGULAIR [Concomitant]
     Active Substance: MONTELUKAST SODIUM
     Route: 065
  5. FLONASE [Concomitant]
     Active Substance: FLUTICASONE PROPIONATE
     Route: 065
  6. CLARITIN [Concomitant]
     Active Substance: LORATADINE
     Route: 065
  7. AZELASTINE HYDROCHLORIDE [Concomitant]
     Active Substance: AZELASTINE HYDROCHLORIDE
     Route: 065
  8. FLUTICASONE PROPIONATE [Concomitant]
     Active Substance: FLUTICASONE PROPIONATE
     Route: 065
  9. FLUTICASONE [Concomitant]
     Active Substance: FLUTICASONE
  10. AZELASTINE [Concomitant]
     Active Substance: AZELASTINE

REACTIONS (8)
  - COVID-19 [Unknown]
  - Diffuse large B-cell lymphoma [Unknown]
  - Infusion related reaction [Unknown]
  - Infectious mononucleosis [Unknown]
  - Ear infection [Unknown]
  - Nausea [Unknown]
  - Headache [Unknown]
  - Sinusitis [Recovering/Resolving]

NARRATIVE: CASE EVENT DATE: 20220120
